FAERS Safety Report 5295881-6 (Version None)
Quarter: 2007Q2

REPORT INFORMATION
  Report Type: 
  Country: None (occurrence: None)
  Receive Date: 20070413
  Receipt Date: 20070402
  Transmission Date: 20071010
  Serious: Yes (Other)
  Sender: FDA-Public Use
  Company Number: AU-AVENTIS-200712310GDDC

PATIENT
  Age: 71 Year
  Sex: Female

DRUGS (3)
  1. ARAVA [Suspect]
     Dosage: DOSE: UNK
     Route: 048
     Dates: start: 20060726
  2. PREDNISOLONE [Concomitant]
     Indication: RHEUMATOID ARTHRITIS
     Route: 048
  3. CALTRATE                           /00108001/ [Concomitant]
     Indication: OSTEOPOROSIS
     Dosage: DOSE QUANTITY: 1
     Route: 048

REACTIONS (1)
  - SQUAMOUS CELL CARCINOMA [None]
